FAERS Safety Report 18571600 (Version 1)
Quarter: 2020Q4

REPORT INFORMATION
  Report Type: Report from Study
  Country: US (occurrence: US)
  Receive Date: 20201202
  Receipt Date: 20201202
  Transmission Date: 20210114
  Serious: Yes (Other)
  Sender: FDA-Public Use
  Company Number: US-TAKEDA-US202000419

PATIENT
  Age: 41 Year
  Sex: Female

DRUGS (1)
  1. HUMAN NORMAL IMMUNOGLOBULIN; LIQUID [Suspect]
     Active Substance: HUMAN IMMUNOGLOBULIN G
     Indication: SELECTIVE IGG SUBCLASS DEFICIENCY
     Route: 042

REACTIONS (24)
  - Coma [Recovering/Resolving]
  - Organ failure [Unknown]
  - Vomiting [Unknown]
  - Dental caries [Unknown]
  - Bronchitis [Unknown]
  - Pain [Unknown]
  - Gait inability [Unknown]
  - Condition aggravated [Unknown]
  - Asthma [Unknown]
  - Staphylococcal infection [Unknown]
  - Pneumonia [Unknown]
  - Anaphylactic shock [Unknown]
  - Pneumothorax [Unknown]
  - Sepsis [Recovering/Resolving]
  - Hypersensitivity [Unknown]
  - Food allergy [Unknown]
  - Vocal cord disorder [Unknown]
  - Nausea [Unknown]
  - Sinusitis [Unknown]
  - Ear infection [Unknown]
  - Tooth disorder [Unknown]
  - Cellulitis [Unknown]
  - Gastrointestinal disorder [Unknown]
  - Gastrooesophageal reflux disease [Unknown]

NARRATIVE: CASE EVENT DATE: 202006
